FAERS Safety Report 10412956 (Version 1)
Quarter: 2014Q2

REPORT INFORMATION
  Report Type: Spontaneous
  Country: US (occurrence: None)
  Receive Date: 20140604
  Receipt Date: 20140604
  Transmission Date: 20141212
  Serious: Yes (Hospitalization)
  Sender: FDA-Public Use
  Company Number: 389148

PATIENT
  Age: 11 Year
  Sex: Male
  Weight: 27.2 kg

DRUGS (2)
  1. NORDITROPIN [Suspect]
     Indication: GROWTH HORMONE DEFICIENCY
     Dosage: HS
     Route: 058
     Dates: start: 20130301, end: 20130721
  2. NORDITROPIN [Suspect]
     Indication: BODY HEIGHT BELOW NORMAL
     Dosage: HS
     Route: 058
     Dates: start: 20130301, end: 20130721

REACTIONS (1)
  - Pancreatitis [None]
